FAERS Safety Report 17799320 (Version 1)
Quarter: 2020Q2

REPORT INFORMATION
  Report Type: Other
  Country: FR (occurrence: FR)
  Receive Date: 20200518
  Receipt Date: 20200518
  Transmission Date: 20200714
  Serious: Yes (Life-Threatening, Hospitalization, Other)
  Sender: FDA-Public Use
  Company Number: FR-APPCO PHARMA LLC-2083899

PATIENT
  Age: 72 Year

DRUGS (1)
  1. HALOPERIDOL TABLETS USP, 0.5 MG, 1 MG, 2 MG, 5 MG, 10 MG AND 20 MG [Suspect]
     Active Substance: HALOPERIDOL
     Indication: PRODUCT USED FOR UNKNOWN INDICATION
     Route: 065

REACTIONS (2)
  - Malignant catatonia [Recovered/Resolved]
  - Dementia with Lewy bodies [Unknown]
